FAERS Safety Report 4447556-0 (Version None)
Quarter: 2004Q3

REPORT INFORMATION
  Report Type: 
  Country: None (occurrence: None)
  Receive Date: 20040812
  Receipt Date: 20040707
  Transmission Date: 20050211
  Serious: No
  Sender: FDA-Public Use
  Company Number: USA040771900

PATIENT
  Age: 58 Year
  Sex: Male

DRUGS (12)
  1. CIALIS [Suspect]
     Dosage: 20 MG
     Dates: start: 20040601
  2. DIOVAN [Concomitant]
  3. CARDURA [Concomitant]
  4. PAXIL [Concomitant]
  5. GLUCOPHAGE [Concomitant]
  6. AMARYL [Concomitant]
  7. TOPAMAX [Concomitant]
  8. POTASSIUM [Concomitant]
  9. DIAZEPAM [Concomitant]
  10. HYDROCODONE [Concomitant]
  11. ASPIRIN [Concomitant]
  12. TESTOSTERONE [Concomitant]

REACTIONS (1)
  - THERAPEUTIC RESPONSE DECREASED [None]
